FAERS Safety Report 22094351 (Version 3)
Quarter: 2023Q1

REPORT INFORMATION
  Report Type: Report from Study
  Country: DK (occurrence: None)
  Receive Date: 20230314
  Receipt Date: 20230320
  Transmission Date: 20230417
  Serious: Yes (Hospitalization)
  Sender: FDA-Public Use
  Company Number: DK-Eisai Medical Research-EC-2023-135995

PATIENT
  Age: 73 Year
  Sex: Male
  Weight: 73.7 kg

DRUGS (8)
  1. LENVATINIB [Suspect]
     Active Substance: LENVATINIB
     Indication: Clear cell renal cell carcinoma
     Route: 048
     Dates: start: 20221114, end: 20230306
  2. LENVATINIB [Suspect]
     Active Substance: LENVATINIB
     Route: 048
     Dates: start: 20230311
  3. PEMBROLIZUMAB [Suspect]
     Active Substance: PEMBROLIZUMAB
     Indication: Clear cell renal cell carcinoma
     Route: 041
     Dates: start: 20221114, end: 20230209
  4. FRAGMIN [Concomitant]
     Active Substance: DALTEPARIN SODIUM
     Route: 058
     Dates: start: 20221024, end: 20230306
  5. BALANCID NOVUM [Concomitant]
     Dates: start: 20221121
  6. ACETAMINOPHEN [Concomitant]
     Active Substance: ACETAMINOPHEN
     Dates: start: 20221121
  7. NUTRIDRINK COMPACT PROTEIN [Concomitant]
     Dates: start: 20221107
  8. LOPERAMIDE [Concomitant]
     Active Substance: LOPERAMIDE
     Dates: start: 20230205

REACTIONS (2)
  - Anal haemorrhage [Recovered/Resolved]
  - Anaemia [Recovered/Resolved]

NARRATIVE: CASE EVENT DATE: 20230306
